FAERS Safety Report 7857427-5 (Version None)
Quarter: 2011Q4

REPORT INFORMATION
  Report Type: 
  Country: None (occurrence: None)
  Receive Date: 20111027
  Receipt Date: 20110425
  Transmission Date: 20120403
  Serious: Yes (Hospitalization)
  Sender: FDA-Public Use
  Company Number: 2011BI015879

PATIENT
  Age: 52 Year
  Sex: Female

DRUGS (1)
  1. TYSABRI [Suspect]
     Indication: MULTIPLE SCLEROSIS
     Route: 042
     Dates: start: 20101227, end: 20110325

REACTIONS (2)
  - DRUG SPECIFIC ANTIBODY PRESENT [None]
  - MULTIPLE SCLEROSIS RELAPSE [None]
